FAERS Safety Report 25818342 (Version 1)
Quarter: 2025Q3

REPORT INFORMATION
  Report Type: Spontaneous
  Country: US (occurrence: None)
  Receive Date: 20250918
  Receipt Date: 20250918
  Transmission Date: 20251021
  Serious: Yes (Death)
  Sender: FDA-CTU
  Company Number: None

PATIENT
  Sex: Female

DRUGS (14)
  1. TIVICAY [Suspect]
     Active Substance: DOLUTEGRAVIR SODIUM
     Indication: HIV infection
     Dosage: FREQUENCY : DAILY;?
     Route: 048
  2. DESCOVY [Suspect]
     Active Substance: EMTRICITABINE\TENOFOVIR ALAFENAMIDE FUMARATE
     Indication: HIV infection
     Dosage: OTHER QUANTITY : 200MG/25MG;?FREQUENCY : DAILY;?
     Route: 048
  3. OMEPRAZOLE 20MG (OTC) TABLETS [Concomitant]
  4. POTASSIUM CHLORIDE 20MEQ ER TABLETS [Concomitant]
  5. LOPERAMIDE 2MG CAPSULES [Concomitant]
  6. ONDANSETRON HYDROCHLORIDE [Concomitant]
     Active Substance: ONDANSETRON HYDROCHLORIDE
  7. DESCOVY 200MG/25MG TABLETS [Concomitant]
  8. TIVICAY 50MG TABLETS [Concomitant]
  9. FLUTICASONE 50MCG NASAL SP (120) RX [Concomitant]
  10. SENNA 8.6MG TABLETS [Concomitant]
  11. ALBUTEROL HFA INH (200 PUFFS) 18GM [Concomitant]
  12. FAMOTIDINE 40MG TABLETS [Concomitant]
  13. ACETAMINOPHEN\OXYCODONE HYDROCHLORIDE [Concomitant]
     Active Substance: ACETAMINOPHEN\OXYCODONE HYDROCHLORIDE
  14. VITAMIN D2 50,000IU (ERGO) CAP [Concomitant]

REACTIONS (1)
  - Death [None]
